FAERS Safety Report 9415144 (Version 4)
Quarter: 2014Q2

REPORT INFORMATION
  Report Type: Report from Study
  Country: CN (occurrence: CN)
  Receive Date: 20130723
  Receipt Date: 20140515
  Transmission Date: 20141212
  Serious: Yes (Hospitalization)
  Sender: FDA-Public Use
  Company Number: PHHY2013CN077787

PATIENT
  Age: 82 Year
  Sex: Female

DRUGS (2)
  1. ACLASTA [Suspect]
     Indication: OSTEOPOROSIS
     Dosage: 5MG/100ML (FREQUENCY OF ONCE IN 219 DAYS)
     Route: 042
     Dates: start: 20121106, end: 20121106
  2. ACLASTA [Suspect]
     Dosage: 5MG/100ML (FREQUENCY OF ONCE IN 219 DAYS)
     Route: 042
     Dates: start: 20130613

REACTIONS (2)
  - Cardiac disorder [Recovered/Resolved]
  - Inappropriate schedule of drug administration [Unknown]
